FAERS Safety Report 5128267-5 (Version None)
Quarter: 2006Q4

REPORT INFORMATION
  Report Type: 
  Country: None (occurrence: None)
  Receive Date: 20061011
  Receipt Date: 20060929
  Transmission Date: 20070319
  Serious: Yes (Hospitalization)
  Sender: FDA-Public Use
  Company Number: S06-FRA-04153-01

PATIENT
  Age: 72 Year
  Sex: Female

DRUGS (5)
  1. SEROPLEX (ESCITALOPRAM) [Suspect]
     Indication: DEPRESSION
     Dosage: 15 MG QD PO
     Route: 048
     Dates: start: 20060623
  2. TENSTATEN (CICLETANINE) [Concomitant]
  3. VASTAREL (TRIMETAZIDINE HYDROCHLORIDE) [Concomitant]
  4. PROPRANOLOL [Concomitant]
  5. NOCTRAN [Concomitant]

REACTIONS (2)
  - ASTHENIA [None]
  - HYPONATRAEMIA [None]
